FAERS Safety Report 4647296-9 (Version None)
Quarter: 2005Q2

REPORT INFORMATION
  Report Type: 
  Country: None (occurrence: None)
  Receive Date: 20050426
  Receipt Date: 20050411
  Transmission Date: 20051028
  Serious: Yes (Hospitalization)
  Sender: FDA-Public Use
  Company Number: FABR-11069

PATIENT
  Age: 46 Year
  Sex: Male
  Weight: 77 kg

DRUGS (6)
  1. FABRAZYME [Suspect]
     Indication: FABRY'S DISEASE
     Dosage: 75 MG Q2WKS IV
     Route: 042
     Dates: start: 20040517
  2. AMEZINIUM METILSULFATE [Concomitant]
  3. ASPIRIN [Concomitant]
  4. LEVOTHYROXINE SODIUM [Concomitant]
  5. CALCIUM POLYSTYRENE SULFONATE [Concomitant]
  6. SEVELAMER HYDROCHLORIDE [Concomitant]

REACTIONS (7)
  - CEREBROVASCULAR DISORDER [None]
  - CHOKING [None]
  - DEPRESSED LEVEL OF CONSCIOUSNESS [None]
  - INFLAMMATION [None]
  - NASOPHARYNGITIS [None]
  - PNEUMONIA [None]
  - PYREXIA [None]
